FAERS Safety Report 6059833-0 (Version None)
Quarter: 2009Q1

REPORT INFORMATION
  Report Type: 
  Country: None (occurrence: None)
  Receive Date: 20090130
  Receipt Date: 20081119
  Transmission Date: 20090719
  Serious: No
  Sender: FDA-Public Use
  Company Number: US-ABBOTT-08P-163-0489042-00

PATIENT
  Sex: Male

DRUGS (1)
  1. LUPRON [Suspect]
     Indication: PROSTATE CANCER

REACTIONS (17)
  - ARTHRALGIA [None]
  - AXILLARY PAIN [None]
  - BACK PAIN [None]
  - CHEST PAIN [None]
  - DRY MOUTH [None]
  - FATIGUE [None]
  - FEELING HOT [None]
  - FORMICATION [None]
  - HEADACHE [None]
  - HOT FLUSH [None]
  - HUNGER [None]
  - MUSCLE SPASMS [None]
  - MYALGIA [None]
  - PAIN IN JAW [None]
  - PRURITUS [None]
  - TENDERNESS [None]
  - TESTICULAR DISORDER [None]
